FAERS Safety Report 4975572-9 (Version None)
Quarter: 2006Q2

REPORT INFORMATION
  Report Type: 
  Country: None (occurrence: None)
  Receive Date: 20060410
  Receipt Date: 20060320
  Transmission Date: 20061013
  Serious: Yes (Other)
  Sender: FDA-Public Use
  Company Number: DE200603007194

PATIENT
  Age: 40 Year
  Sex: Female
  Weight: 65 kg

DRUGS (2)
  1. ZYPREXA [Suspect]
     Indication: SCHIZOPHRENIA
     Dosage: 5 MG, DAILY (1/D), ORAL; SEE IMAGE
     Route: 048
     Dates: start: 20041224, end: 20050105
  2. RISPERIDONE [Concomitant]

REACTIONS (6)
  - CIRCULATORY COLLAPSE [None]
  - CONVULSION [None]
  - ELECTROENCEPHALOGRAM ABNORMAL [None]
  - ENURESIS [None]
  - PRESCRIBED OVERDOSE [None]
  - SYNCOPE VASOVAGAL [None]
